FAERS Safety Report 6372769-0 (Version None)
Quarter: 2009Q3

REPORT INFORMATION
  Report Type: 
  Country: None (occurrence: None)
  Receive Date: 20090924
  Receipt Date: 20090115
  Transmission Date: 20100115
  Serious: No
  Sender: FDA-Public Use
  Company Number: US-ASTRAZENECA-2008UW23791

PATIENT
  Age: 43 Year
  Sex: Male
  Weight: 108.9 kg

DRUGS (9)
  1. SEROQUEL XR [Suspect]
     Indication: SCHIZOPHRENIA, PARANOID TYPE
     Dosage: 300 MG
     Route: 048
     Dates: start: 20080702, end: 20081002
  2. SEROQUEL XR [Suspect]
     Dosage: 600 MG
     Route: 048
     Dates: start: 20080701, end: 20090101
  3. SEROQUEL XR [Suspect]
     Dosage: 400 MG
     Route: 048
     Dates: start: 20080101
  4. SEROQUEL XR [Suspect]
     Dosage: TITRATED BACK TO 300 MG
     Route: 048
     Dates: start: 20090101
  5. ZYPREXA [Concomitant]
     Dosage: 7.5 MG
     Dates: end: 20080701
  6. PRILOSEC [Concomitant]
     Indication: GASTROOESOPHAGEAL REFLUX DISEASE
     Route: 048
  7. HYDROCHLOROTHIAZIDE [Concomitant]
     Route: 048
  8. POTASSIUM CHLORIDE [Concomitant]
  9. METOPROLOL TARTRATE [Concomitant]
     Indication: HYPERTENSION
     Route: 048

REACTIONS (6)
  - BLOOD CREATINE PHOSPHOKINASE INCREASED [None]
  - FEELING DRUNK [None]
  - LIP DISORDER [None]
  - MOVEMENT DISORDER [None]
  - PARANOIA [None]
  - WEIGHT INCREASED [None]
